FAERS Safety Report 5935813-8 (Version None)
Quarter: 2008Q4

REPORT INFORMATION
  Report Type: 
  Country: None (occurrence: None)
  Receive Date: 20081030
  Receipt Date: 20081022
  Transmission Date: 20090506
  Serious: Yes (Other)
  Sender: FDA-Public Use
  Company Number: PHEH2008US09481

PATIENT

DRUGS (1)
  1. TRILEPTAL [Suspect]
     Dosage: UNK

REACTIONS (2)
  - GASTRIC DISORDER [None]
  - GASTRIC OPERATION [None]
